FAERS Safety Report 17139161 (Version 2)
Quarter: 2020Q1

REPORT INFORMATION
  Report Type: Spontaneous
  Country: US (occurrence: US)
  Receive Date: 20191211
  Receipt Date: 20200331
  Transmission Date: 20200409
  Serious: Yes (Hospitalization, Other)
  Sender: FDA-Public Use
  Company Number: US-ABBVIE-19K-163-3182163-00

PATIENT
  Age: 66 Year
  Sex: Female
  Weight: 104.42 kg

DRUGS (10)
  1. PREDNISONE. [Suspect]
     Active Substance: PREDNISONE
     Route: 065
     Dates: start: 2019
  2. PREDNISONE. [Suspect]
     Active Substance: PREDNISONE
     Indication: PRODUCT USED FOR UNKNOWN INDICATION
     Route: 065
     Dates: end: 2019
  3. APRISO [Concomitant]
     Active Substance: MESALAMINE
     Indication: COLITIS ULCERATIVE
  4. VITAMIN D [Concomitant]
     Active Substance: VITAMIN D NOS
     Indication: PRODUCT USED FOR UNKNOWN INDICATION
  5. ONDANSETRON [Concomitant]
     Active Substance: ONDANSETRON
     Indication: PRODUCT USED FOR UNKNOWN INDICATION
  6. HUMIRA [Suspect]
     Active Substance: ADALIMUMAB
     Indication: COLITIS ULCERATIVE
     Dosage: CITRATE FREE
     Route: 058
     Dates: start: 201902, end: 202001
  7. POTASSIUM [Concomitant]
     Active Substance: POTASSIUM
     Indication: PRODUCT USED FOR UNKNOWN INDICATION
  8. METFORMIN [Suspect]
     Active Substance: METFORMIN HYDROCHLORIDE
     Indication: BLOOD GLUCOSE INCREASED
     Route: 065
  9. OMEPRAZOLE. [Concomitant]
     Active Substance: OMEPRAZOLE
     Indication: GASTROOESOPHAGEAL REFLUX DISEASE
  10. HUMIRA [Suspect]
     Active Substance: ADALIMUMAB
     Indication: COLITIS ULCERATIVE
     Dosage: SWITCHED TO CITRATE FREE
     Route: 058
     Dates: start: 20181125, end: 201902

REACTIONS (28)
  - Colitis [Unknown]
  - Sinus operation [Recovered/Resolved]
  - Haemorrhage [Unknown]
  - Bursitis [Unknown]
  - Spondylitis [Unknown]
  - Pain [Unknown]
  - Drug ineffective [Recovered/Resolved]
  - Rash [Recovered/Resolved]
  - Rotator cuff syndrome [Unknown]
  - Throat irritation [Recovering/Resolving]
  - Rectal haemorrhage [Recovered/Resolved]
  - Dyspnoea [Unknown]
  - Rash [Recovered/Resolved]
  - Upper respiratory tract infection [Unknown]
  - Rectal haemorrhage [Recovered/Resolved]
  - Incorrect dose administered [Recovered/Resolved]
  - Sinus operation [Recovering/Resolving]
  - Blood glucose increased [Not Recovered/Not Resolved]
  - Proctalgia [Recovered/Resolved]
  - Diarrhoea [Recovered/Resolved]
  - Headache [Not Recovered/Not Resolved]
  - Proctalgia [Recovered/Resolved]
  - Diarrhoea [Recovered/Resolved]
  - Adverse drug reaction [Recovered/Resolved]
  - Throat irritation [Recovered/Resolved]
  - Hypertension [Unknown]
  - Unevaluable event [Unknown]
  - Muscle spasms [Not Recovered/Not Resolved]

NARRATIVE: CASE EVENT DATE: 2018
